FAERS Safety Report 23141385 (Version 18)
Quarter: 2025Q2

REPORT INFORMATION
  Report Type: Report from Study
  Country: CA (occurrence: CA)
  Receive Date: 20231103
  Receipt Date: 20250528
  Transmission Date: 20250717
  Serious: Yes (Hospitalization, Other)
  Sender: ROCHE
  Company Number: CA-ROCHE-2495574

PATIENT
  Age: 65 Year
  Sex: Female
  Weight: 65 kg

DRUGS (39)
  1. AVASTIN [Suspect]
     Active Substance: BEVACIZUMAB
     Indication: Hereditary haemorrhagic telangiectasia
     Route: 042
     Dates: start: 20191202, end: 20200310
  2. AVASTIN [Suspect]
     Active Substance: BEVACIZUMAB
     Route: 042
     Dates: start: 20200409, end: 20240711
  3. AVASTIN [Suspect]
     Active Substance: BEVACIZUMAB
     Route: 042
     Dates: start: 20200508
  4. AVASTIN [Suspect]
     Active Substance: BEVACIZUMAB
     Route: 042
     Dates: start: 20200409
  5. AVASTIN [Suspect]
     Active Substance: BEVACIZUMAB
     Route: 042
     Dates: start: 20200409, end: 20240905
  6. AVASTIN [Suspect]
     Active Substance: BEVACIZUMAB
     Route: 042
  7. AVASTIN [Suspect]
     Active Substance: BEVACIZUMAB
     Route: 042
  8. AVASTIN [Suspect]
     Active Substance: BEVACIZUMAB
     Route: 042
  9. AVASTIN [Suspect]
     Active Substance: BEVACIZUMAB
     Route: 042
  10. AVASTIN [Suspect]
     Active Substance: BEVACIZUMAB
     Route: 042
  11. AVASTIN [Suspect]
     Active Substance: BEVACIZUMAB
     Route: 042
  12. AVASTIN [Suspect]
     Active Substance: BEVACIZUMAB
     Route: 042
  13. AVASTIN [Suspect]
     Active Substance: BEVACIZUMAB
     Route: 042
  14. AVASTIN [Suspect]
     Active Substance: BEVACIZUMAB
     Route: 042
  15. AVASTIN [Suspect]
     Active Substance: BEVACIZUMAB
     Route: 042
  16. AVASTIN [Suspect]
     Active Substance: BEVACIZUMAB
     Route: 042
  17. AVASTIN [Suspect]
     Active Substance: BEVACIZUMAB
     Route: 042
  18. AVASTIN [Suspect]
     Active Substance: BEVACIZUMAB
     Route: 042
  19. AVASTIN [Suspect]
     Active Substance: BEVACIZUMAB
     Route: 042
  20. AVASTIN [Suspect]
     Active Substance: BEVACIZUMAB
     Route: 042
  21. AVASTIN [Suspect]
     Active Substance: BEVACIZUMAB
     Route: 042
  22. AVASTIN [Suspect]
     Active Substance: BEVACIZUMAB
     Route: 042
  23. AVASTIN [Suspect]
     Active Substance: BEVACIZUMAB
     Route: 042
  24. AVASTIN [Suspect]
     Active Substance: BEVACIZUMAB
     Route: 042
  25. AVASTIN [Suspect]
     Active Substance: BEVACIZUMAB
     Route: 042
  26. AVASTIN [Suspect]
     Active Substance: BEVACIZUMAB
     Dosage: ONGOING
     Route: 042
     Dates: start: 20241010
  27. AVASTIN [Suspect]
     Active Substance: BEVACIZUMAB
     Dosage: ONGOING
     Route: 042
     Dates: start: 20241010
  28. AVASTIN [Suspect]
     Active Substance: BEVACIZUMAB
     Dosage: ONGOING
     Route: 042
     Dates: start: 20241010
  29. LIPITOR [Suspect]
     Active Substance: ATORVASTATIN CALCIUM
     Indication: Myocardial infarction
     Route: 048
     Dates: end: 20200102
  30. DOXYCYCLINE [Concomitant]
     Active Substance: DOXYCYCLINE
     Indication: Product used for unknown indication
     Route: 048
     Dates: start: 20201019
  31. EZETIMIBE [Concomitant]
     Active Substance: EZETIMIBE
  32. BISOPRIL [Concomitant]
     Route: 048
  33. DIOVAN [Concomitant]
     Active Substance: VALSARTAN
     Indication: Hypertension
     Dates: start: 20220314
  34. FLUOXETINE [Concomitant]
     Active Substance: FLUOXETINE HYDROCHLORIDE
     Route: 048
  35. VALSARTAN [Concomitant]
     Active Substance: VALSARTAN
     Route: 048
  36. CANNABIDIOL [Concomitant]
     Active Substance: CANNABIDIOL
     Route: 065
  37. BISOPROLOL [Concomitant]
     Active Substance: BISOPROLOL
     Route: 065
  38. PRAVASTATIN [Concomitant]
     Active Substance: PRAVASTATIN
  39. DILTIAZEM [Concomitant]
     Active Substance: DILTIAZEM

REACTIONS (51)
  - Myocardial infarction [Unknown]
  - Chest pain [Recovering/Resolving]
  - Nausea [Unknown]
  - Pulmonary embolism [Unknown]
  - Liver disorder [Unknown]
  - Hepatic enzyme increased [Unknown]
  - Gastrointestinal haemorrhage [Unknown]
  - Sjogren^s syndrome [Unknown]
  - Heart rate decreased [Unknown]
  - Blood pressure fluctuation [Unknown]
  - Muscular weakness [Not Recovered/Not Resolved]
  - Oxygen saturation decreased [Unknown]
  - Pain [Unknown]
  - Blood pressure diastolic abnormal [Unknown]
  - Blood pressure diastolic decreased [Unknown]
  - Stress [Unknown]
  - Amnesia [Unknown]
  - Weight increased [Not Recovered/Not Resolved]
  - Pyrexia [Recovered/Resolved]
  - Cough [Unknown]
  - Body temperature decreased [Unknown]
  - Blood pressure systolic increased [Recovering/Resolving]
  - Nasopharyngitis [Recovered/Resolved]
  - Blood pressure increased [Unknown]
  - Headache [Unknown]
  - Chills [Unknown]
  - Pain [Unknown]
  - Tachycardia [Recovered/Resolved]
  - Weight decreased [Unknown]
  - Eye pain [Unknown]
  - Hypertension [Unknown]
  - Dysuria [Unknown]
  - Dyspnoea [Recovered/Resolved]
  - Respiratory rate increased [Recovered/Resolved]
  - Tooth abscess [Unknown]
  - Mental impairment [Unknown]
  - Jaundice [Unknown]
  - Loss of personal independence in daily activities [Unknown]
  - Disturbance in attention [Unknown]
  - Memory impairment [Unknown]
  - Heart rate increased [Unknown]
  - Off label use [Unknown]
  - Myositis [Unknown]
  - Epistaxis [Unknown]
  - Asthenia [Unknown]
  - Drug ineffective [Unknown]
  - Hand dermatitis [Unknown]
  - Blood pressure diastolic decreased [Unknown]
  - Haematemesis [Unknown]
  - Blood potassium decreased [Unknown]
  - Blood magnesium decreased [Unknown]

NARRATIVE: CASE EVENT DATE: 20191202
